FAERS Safety Report 22395642 (Version 1)
Quarter: 2023Q2

REPORT INFORMATION
  Report Type: Spontaneous
  Country: US (occurrence: US)
  Receive Date: 20230601
  Receipt Date: 20230601
  Transmission Date: 20230722
  Serious: No
  Sender: FDA-Public Use
  Company Number: US-ALLERGAN-2128884US

PATIENT
  Sex: Female

DRUGS (6)
  1. BOTOX [Suspect]
     Active Substance: ONABOTULINUMTOXINA
     Indication: Oromandibular dystonia
     Dosage: UNK, SINGLE
     Dates: start: 2021, end: 2021
  2. BOTOX [Suspect]
     Active Substance: ONABOTULINUMTOXINA
     Indication: Torticollis
  3. IBUPROFEN [Concomitant]
     Active Substance: IBUPROFEN
     Indication: Product used for unknown indication
  4. PROGESTERONE [Concomitant]
     Active Substance: PROGESTERONE
     Indication: Product used for unknown indication
  5. TYLENOL [Concomitant]
     Active Substance: ACETAMINOPHEN
     Indication: Product used for unknown indication
     Route: 048
  6. VALIUM [Concomitant]
     Active Substance: DIAZEPAM
     Indication: Product used for unknown indication
     Dosage: 5 MG, PRN
     Route: 048

REACTIONS (8)
  - Dystonia [Not Recovered/Not Resolved]
  - Trismus [Not Recovered/Not Resolved]
  - Stress [Unknown]
  - Loss of personal independence in daily activities [Not Recovered/Not Resolved]
  - Off label use [Unknown]
  - Hypertension [Unknown]
  - Therapeutic response shortened [Unknown]
  - Asthenia [Unknown]
